FAERS Safety Report 5428245-2 (Version None)
Quarter: 2007Q3

REPORT INFORMATION
  Report Type: 
  Country: None (occurrence: None)
  Receive Date: 20070828
  Receipt Date: 20070821
  Transmission Date: 20080115
  Serious: Yes (Other)
  Sender: FDA-Public Use
  Company Number: IL-PFIZER INC-2007069816

PATIENT
  Age: 27 Year
  Sex: Male

DRUGS (4)
  1. ANTITHYMOCYTE IMMUNOGLOBULIN SOLUTION, STERILE [Suspect]
     Indication: STEM CELL TRANSPLANT
     Dosage: DAILY DOSE:10MG/KG
  2. FLUDARABINE PHOSPHATE [Suspect]
     Indication: STEM CELL TRANSPLANT
  3. BUSULFAN [Suspect]
     Indication: STEM CELL TRANSPLANT
  4. ETOPOSIDE [Suspect]
     Indication: STEM CELL TRANSPLANT

REACTIONS (1)
  - MUCOSAL EXFOLIATION [None]
